FAERS Safety Report 7238221-5 (Version None)
Quarter: 2011Q1

REPORT INFORMATION
  Report Type: 
  Country: None (occurrence: None)
  Receive Date: 20110121
  Receipt Date: 20110113
  Transmission Date: 20110831
  Serious: Yes (Other)
  Sender: FDA-Public Use
  Company Number: US-PFIZER INC-HQWYE517624MAY06

PATIENT
  Sex: Female
  Weight: 104 kg

DRUGS (2)
  1. PREMPRO [Suspect]
     Indication: HORMONE REPLACEMENT THERAPY
     Dosage: 0.625/2.5 MG
     Route: 048
     Dates: start: 19990101, end: 20000201
  2. PREMPRO [Suspect]
     Dosage: 0.625/5 MG
     Route: 048
     Dates: start: 20000217

REACTIONS (1)
  - BREAST CANCER FEMALE [None]
